FAERS Safety Report 13947623 (Version 2)
Quarter: 2017Q3

REPORT INFORMATION
  Report Type: Spontaneous
  Country: US (occurrence: US)
  Receive Date: 20170908
  Receipt Date: 20170908
  Transmission Date: 20171128
  Serious: Yes (Other)
  Sender: FDA-Public Use
  Company Number: US-CIPLA LTD.-2017US16068

PATIENT

DRUGS (1)
  1. SERTRALINE [Suspect]
     Active Substance: SERTRALINE HYDROCHLORIDE
     Dosage: 50 MG, (INVAGEN MANUFACTURED)
     Route: 048

REACTIONS (3)
  - Throat tightness [Unknown]
  - Chest discomfort [Unknown]
  - Drug administration error [Unknown]
